FAERS Safety Report 24537867 (Version 2)
Quarter: 2024Q4

REPORT INFORMATION
  Report Type: Spontaneous
  Country: CH (occurrence: CH)
  Receive Date: 20241023
  Receipt Date: 20241107
  Transmission Date: 20250114
  Serious: Yes (Hospitalization)
  Sender: TEVA
  Company Number: CH-TEVA-VS-3254452

PATIENT
  Age: 55 Year
  Sex: Male

DRUGS (4)
  1. BISOPROLOL [Suspect]
     Active Substance: BISOPROLOL\BISOPROLOL FUMARATE
     Indication: Hypertension
     Route: 065
  2. MAVACAMTEN [Suspect]
     Active Substance: MAVACAMTEN
     Indication: Left ventricle outflow tract obstruction
     Route: 065
  3. OLMESARTAN [Suspect]
     Active Substance: OLMESARTAN
     Indication: Hypertension
     Dosage: OLMESARTAN-MEDOXOMIL
     Route: 065
  4. OLMESARTAN [Suspect]
     Active Substance: OLMESARTAN
     Indication: Hypertension
     Dosage: OLMESARTAN-MEDOXOMIL
     Route: 065

REACTIONS (2)
  - Accelerated hypertension [Recovering/Resolving]
  - Drug ineffective [Unknown]
